FAERS Safety Report 5615640-1 (Version None)
Quarter: 2008Q1

REPORT INFORMATION
  Report Type: 
  Country: None (occurrence: None)
  Receive Date: 20080206
  Receipt Date: 20080205
  Transmission Date: 20080703
  Serious: Yes (Other)
  Sender: FDA-Public Use
  Company Number: B0506530A

PATIENT
  Age: 61 Year
  Sex: Male

DRUGS (13)
  1. ADARTREL [Suspect]
     Indication: PARKINSON'S DISEASE
     Dosage: 12MG PER DAY
     Route: 048
     Dates: start: 20071205, end: 20071228
  2. REQUIP [Concomitant]
     Indication: PARKINSON'S DISEASE
     Dosage: 72MG PER DAY
  3. MADOPAR [Concomitant]
     Indication: PARKINSON'S DISEASE
     Route: 048
  4. SELEGILINE HCL [Concomitant]
     Indication: PARKINSON'S DISEASE
     Route: 048
  5. VITAMIN E [Concomitant]
     Route: 048
  6. TRAMADOL HCL [Concomitant]
     Indication: PAIN
     Route: 048
  7. AMITRIPTYLINE HCL [Concomitant]
     Dosage: 25MG PER DAY
     Route: 048
  8. DIAZEPAM [Concomitant]
     Dosage: 4MG PER DAY
  9. SINEMET CR [Concomitant]
     Indication: PARKINSON'S DISEASE
  10. LACTULOSE [Concomitant]
  11. LEVOTHYROXINE SODIUM [Concomitant]
  12. SNO TEARS [Concomitant]
     Route: 047
  13. MOVICOL [Concomitant]

REACTIONS (4)
  - CONSTIPATION [None]
  - DRUG INEFFECTIVE [None]
  - MOBILITY DECREASED [None]
  - SPEECH DISORDER DEVELOPMENTAL [None]
